FAERS Safety Report 21971613 (Version 1)
Quarter: 2023Q1

REPORT INFORMATION
  Report Type: Spontaneous
  Country: GB (occurrence: GB)
  Receive Date: 20230209
  Receipt Date: 20230209
  Transmission Date: 20230417
  Serious: Yes (Life-Threatening, Hospitalization, Disabling, Other)
  Sender: FDA-Public Use
  Company Number: GB-AMGEN-GBRSP2023017200

PATIENT
  Age: 37 Year
  Sex: Male
  Weight: 70.9 kg

DRUGS (10)
  1. ADALIMUMAB [Suspect]
     Active Substance: ADALIMUMAB
     Indication: Psoriasis
     Dosage: 40 MILLIGRAM, Q2WK
     Route: 065
     Dates: start: 20210512, end: 20211205
  2. GABAPENTIN [Concomitant]
     Active Substance: GABAPENTIN
     Dosage: UNK
     Dates: start: 20201224
  3. COVID-19 vaccine [Concomitant]
     Dosage: UNK
     Dates: start: 20210127, end: 20210127
  4. COVID-19 vaccine [Concomitant]
     Dosage: UNK
     Dates: start: 20210416, end: 20210416
  5. COVID-19 vaccine [Concomitant]
     Dosage: UNK
     Dates: start: 20211013, end: 20211013
  6. COVID-19 vaccine [Concomitant]
     Dosage: UNK
     Dates: start: 20221019
  7. CLOPIDOGREL [Concomitant]
     Active Substance: CLOPIDOGREL BISULFATE
     Dosage: UNK
     Dates: start: 20220127
  8. THIAMINE [Concomitant]
     Active Substance: THIAMINE
     Dosage: UNK
     Dates: start: 20220204
  9. ATORVASTATIN [Concomitant]
     Active Substance: ATORVASTATIN
     Dosage: UNK
     Dates: start: 20220204
  10. LANSOPRAZOLE [Concomitant]
     Active Substance: LANSOPRAZOLE
     Dosage: UNK
     Dates: start: 20220204

REACTIONS (3)
  - Streptococcal endocarditis [Recovered/Resolved with Sequelae]
  - Cerebral infarction [Recovered/Resolved with Sequelae]
  - Post procedural infection [Recovered/Resolved with Sequelae]

NARRATIVE: CASE EVENT DATE: 20211205
